FAERS Safety Report 9132667 (Version 1)
Quarter: 2013Q1

REPORT INFORMATION
  Report Type: Spontaneous
  Country: FR (occurrence: FR)
  Receive Date: 20130301
  Receipt Date: 20130301
  Transmission Date: 20140127
  Serious: No
  Sender: FDA-Public Use
  Company Number: FR-ROCHE-1196141

PATIENT
  Age: 12 Year
  Sex: Male

DRUGS (2)
  1. TAMIFLU [Suspect]
     Indication: INFLUENZA
     Route: 048
     Dates: start: 20130221
  2. TAMIFLU [Suspect]
     Route: 048
     Dates: start: 20130223, end: 20130225

REACTIONS (4)
  - Overdose [Unknown]
  - Fall [Unknown]
  - Headache [Recovered/Resolved]
  - Dizziness [Recovered/Resolved]
